FAERS Safety Report 4553257-0 (Version None)
Quarter: 2005Q1

REPORT INFORMATION
  Report Type: 
  Country: None (occurrence: None)
  Receive Date: 20050113
  Receipt Date: 20041221
  Transmission Date: 20050727
  Serious: Yes (Death)
  Sender: FDA-Public Use
  Company Number: 2004119717

PATIENT
  Age: 60 Year
  Sex: Female

DRUGS (3)
  1. BEXTRA [Suspect]
     Indication: BACK PAIN
     Dosage: 40 MG, ONCE A DAY, ORAL
     Route: 048
     Dates: start: 20041220
  2. NAPROXEN SODIUM [Concomitant]
  3. DICLOFENAC SODIUM [Concomitant]

REACTIONS (1)
  - MYOCARDIAL INFARCTION [None]
